FAERS Safety Report 6185869-5 (Version None)
Quarter: 2009Q2

REPORT INFORMATION
  Report Type: 
  Country: None (occurrence: None)
  Receive Date: 20090511
  Receipt Date: 20090501
  Transmission Date: 20091009
  Serious: Yes (Hospitalization)
  Sender: FDA-Public Use
  Company Number: A0782977A

PATIENT
  Age: 59 Year
  Sex: Female

DRUGS (10)
  1. AVANDIA [Suspect]
     Indication: DIABETES MELLITUS
     Dosage: 8MG PER DAY
     Route: 048
     Dates: start: 20030101, end: 20070401
  2. GLUCOPHAGE [Concomitant]
  3. GLUCOTROL [Concomitant]
  4. METOPROLOL [Concomitant]
  5. LOPRESSOR [Concomitant]
  6. HYDROCHLOROTHIAZIDE [Concomitant]
  7. LIPITOR [Concomitant]
  8. COZAAR [Concomitant]
  9. NORVASC [Concomitant]
  10. PREMARIN [Concomitant]

REACTIONS (8)
  - ANGINA PECTORIS [None]
  - ARTERIOSCLEROSIS [None]
  - CARDIAC FAILURE CONGESTIVE [None]
  - CARDIOMEGALY [None]
  - CAROTID ARTERY DISEASE [None]
  - CEREBROVASCULAR ACCIDENT [None]
  - CORONARY ARTERY DISEASE [None]
  - MYOCARDIAL INFARCTION [None]
